FAERS Safety Report 9142665 (Version 2)
Quarter: 2013Q2

REPORT INFORMATION
  Report Type: Report from Study
  Country: AU (occurrence: AU)
  Receive Date: 20130306
  Receipt Date: 20130506
  Transmission Date: 20140414
  Serious: Yes (Other)
  Sender: FDA-Public Use
  Company Number: PHHY2013AU021684

PATIENT
  Age: 47 Year
  Sex: Male

DRUGS (3)
  1. CLOZARIL [Suspect]
     Dosage: 200 MG
     Route: 048
     Dates: start: 20120314
  2. CLOZARIL [Suspect]
     Dosage: UNK UKN, DOSE INCREASED
     Dates: end: 20121114
  3. THYROXIN [Concomitant]
     Dosage: 150 UG, MANE
     Route: 048

REACTIONS (11)
  - Fall [Unknown]
  - Convulsion [Unknown]
  - Dyskinesia [Recovering/Resolving]
  - Orthostatic hypotension [Unknown]
  - Electroencephalogram abnormal [Unknown]
  - Protein total decreased [Unknown]
  - Blood lactate dehydrogenase increased [Unknown]
  - Globulins decreased [Unknown]
  - Lymphocyte count decreased [Unknown]
  - Neutrophil count increased [Unknown]
  - Platelet count decreased [Unknown]
